FAERS Safety Report 4643310-5 (Version None)
Quarter: 2005Q2

REPORT INFORMATION
  Report Type: 
  Country: None (occurrence: None)
  Receive Date: 20050421
  Receipt Date: 20050411
  Transmission Date: 20051028
  Serious: Yes (Hospitalization, Other)
  Sender: FDA-Public Use
  Company Number: 2005036735

PATIENT
  Age: 71 Year
  Sex: Male
  Weight: 92.0802 kg

DRUGS (9)
  1. ZOLOFT [Suspect]
     Indication: DEPRESSION
     Dosage: 200 MG (100 MG, 2 TABS IN 1 DAY) ORAL
     Route: 048
     Dates: start: 20041101, end: 20050201
  2. RISPERDAL [Suspect]
     Indication: OBSESSIVE THOUGHTS
     Dosage: ORAL
     Route: 048
     Dates: start: 20050101, end: 20050101
  3. LANSOPRAZOLE [Concomitant]
  4. TAMSULOSIN HYDROCHLORIDE (TAMSULOSIN HYDROCHLORIDE) [Concomitant]
  5. LEVOTHYROXINE SODIUM [Concomitant]
  6. LORATADINE [Concomitant]
  7. TRAMADOL HCL [Concomitant]
  8. LORAZEPAM [Concomitant]
  9. LITHIUM CARBONATE [Concomitant]

REACTIONS (16)
  - ABDOMINAL PAIN [None]
  - ANTIPSYCHOTIC DRUG LEVEL INCREASED [None]
  - ANXIETY [None]
  - BLOOD POTASSIUM DECREASED [None]
  - DEHYDRATION [None]
  - DEPRESSED MOOD [None]
  - HERNIA REPAIR [None]
  - HYPERHIDROSIS [None]
  - HYPERSOMNIA [None]
  - INCOHERENT [None]
  - OBSESSIVE THOUGHTS [None]
  - OESOPHAGEAL STENOSIS [None]
  - PAIN [None]
  - SLEEP DISORDER [None]
  - TREMOR [None]
  - WEIGHT DECREASED [None]
